FAERS Safety Report 21034574 (Version 1)
Quarter: 2022Q3

REPORT INFORMATION
  Report Type: Report from Study
  Country: US (occurrence: None)
  Receive Date: 20220701
  Receipt Date: 20220701
  Transmission Date: 20221026
  Serious: Yes (Other)
  Sender: FDA-Public Use
  Company Number: 2022A234375

PATIENT

DRUGS (1)
  1. LOKELMA [Suspect]
     Active Substance: SODIUM ZIRCONIUM CYCLOSILICATE
     Route: 048

REACTIONS (5)
  - Blood potassium decreased [Unknown]
  - Fall [Unknown]
  - Cerebral haemorrhage [Unknown]
  - Influenza [Unknown]
  - COVID-19 [Unknown]
